FAERS Safety Report 21064368 (Version 1)
Quarter: 2022Q3

REPORT INFORMATION
  Report Type: Spontaneous
  Country: US (occurrence: US)
  Receive Date: 20220711
  Receipt Date: 20220711
  Transmission Date: 20221026
  Serious: Yes (Other)
  Sender: FDA-Public Use
  Company Number: US-TASMAN PHARMA, INC.-2022TSM00096

PATIENT
  Age: 29 Year
  Sex: Male

DRUGS (4)
  1. CLOZAPINE [Suspect]
     Active Substance: CLOZAPINE
     Indication: Schizophrenia
     Dosage: 350 MG, 1X/DAY AT BEDTIME
     Route: 065
  2. CLOZAPINE [Suspect]
     Active Substance: CLOZAPINE
     Dosage: 300 MG, 1X/DAY
     Route: 065
  3. CLOZAPINE [Suspect]
     Active Substance: CLOZAPINE
     Dosage: 250 MG, 1X/DAY
     Route: 065
  4. HALOPERIDOL [Concomitant]
     Active Substance: HALOPERIDOL
     Dosage: 2 MG, 1X/DAY
     Route: 065

REACTIONS (1)
  - Impaired gastric emptying [Recovering/Resolving]
